FAERS Safety Report 6183711-X (Version None)
Quarter: 2009Q3

REPORT INFORMATION
  Report Type: 
  Country: None (occurrence: None)
  Receive Date: 20090420
  Receipt Date: 20090420
  Transmission Date: 20100115
  Serious: Yes (Life-Threatening)
  Sender: FDA-Public Use
  Company Number: None

PATIENT
  Age: 78 Year
  Sex: Male
  Weight: 79.3795 kg

DRUGS (2)
  1. THALLIUM STRESS TEST [Suspect]
     Indication: CARDIAC STRESS TEST
     Dates: start: 20081218, end: 20081218
  2. ADENOSINE [Suspect]

REACTIONS (4)
  - DYSPNOEA [None]
  - DYSPNOEA EXERTIONAL [None]
  - GAIT DISTURBANCE [None]
  - RESPIRATORY GAS EXCHANGE DISORDER [None]
